FAERS Safety Report 9281676 (Version 1)
Quarter: 2013Q2

REPORT INFORMATION
  Report Type: Spontaneous
  Country: CH (occurrence: CH)
  Receive Date: 20130509
  Receipt Date: 20130509
  Transmission Date: 20140414
  Serious: Yes (Hospitalization)
  Sender: FDA-Public Use
  Company Number: CH-SANOFI-AVENTIS-2013SA045144

PATIENT
  Age: 69 Year
  Sex: Female

DRUGS (6)
  1. ARAVA [Suspect]
     Indication: PRODUCT USED FOR UNKNOWN INDICATION
     Route: 048
  2. PREDNISONE [Suspect]
     Indication: PRODUCT USED FOR UNKNOWN INDICATION
     Route: 048
  3. TRIATEC [Concomitant]
     Route: 048
  4. ADALAT [Concomitant]
     Route: 048
  5. TOREM /GFR/ [Concomitant]
     Route: 048
  6. STILNOX [Concomitant]
     Route: 048

REACTIONS (3)
  - Pyrexia [Recovered/Resolved]
  - Muscular weakness [Recovered/Resolved]
  - Immune system disorder [Recovering/Resolving]
